FAERS Safety Report 22109398 (Version 1)
Quarter: 2023Q1

REPORT INFORMATION
  Report Type: Spontaneous
  Country: US (occurrence: None)
  Receive Date: 20230317
  Receipt Date: 20230317
  Transmission Date: 20230418
  Serious: Yes (Hospitalization)
  Sender: FDA-Public Use
  Company Number: None

PATIENT
  Age: 49 Year
  Sex: Male
  Weight: 104.3 kg

DRUGS (1)
  1. BELATACEPT [Suspect]
     Active Substance: BELATACEPT
     Indication: Renal transplant
     Dosage: OTHER FREQUENCY : EVERY 28 DAYS;?
     Route: 042
     Dates: start: 20210422

REACTIONS (6)
  - Post procedural haemorrhage [None]
  - Wound dehiscence [None]
  - Postoperative wound infection [None]
  - Superficial vein thrombosis [None]
  - Superficial vein thrombosis [None]
  - Arteriovenous fistula site haemorrhage [None]

NARRATIVE: CASE EVENT DATE: 20230310
